FAERS Safety Report 20299146 (Version 2)
Quarter: 2022Q1

REPORT INFORMATION
  Report Type: Report from Study
  Country: US (occurrence: None)
  Receive Date: 20220105
  Receipt Date: 20220111
  Transmission Date: 20220423
  Serious: Yes (Hospitalization)
  Sender: FDA-Public Use
  Company Number: US-Eisai Medical Research-EC-2021-105005

PATIENT
  Age: 62 Year
  Sex: Female
  Weight: 64.8 kg

DRUGS (12)
  1. LENVIMA [Suspect]
     Active Substance: LENVATINIB
     Indication: Synovial sarcoma
     Route: 048
     Dates: start: 20210823
  2. LENVIMA [Suspect]
     Active Substance: LENVATINIB
     Indication: Metastases to lung
  3. LENVIMA [Suspect]
     Active Substance: LENVATINIB
     Indication: Soft tissue sarcoma
  4. DOXYCYCLINE [Concomitant]
     Active Substance: DOXYCYCLINE
     Route: 065
  5. ELIQUIS [Concomitant]
     Active Substance: APIXABAN
     Route: 065
  6. LEVOTHYROXINE [Concomitant]
     Active Substance: LEVOTHYROXINE
     Route: 065
  7. VISCOUS-LIDOCAINE [Concomitant]
     Route: 065
  8. MORPHINE SULFATE [Concomitant]
     Active Substance: MORPHINE SULFATE
     Route: 065
  9. NAPROXEN [Concomitant]
     Active Substance: NAPROXEN
     Route: 065
  10. NARCAN [Concomitant]
     Active Substance: NALOXONE HYDROCHLORIDE
     Route: 065
  11. ONDANSETRON [Concomitant]
     Active Substance: ONDANSETRON
     Route: 065
  12. OXYCODONE [Concomitant]
     Active Substance: OXYCODONE
     Route: 065

REACTIONS (5)
  - Gait disturbance [Not Recovered/Not Resolved]
  - Amnesia [Not Recovered/Not Resolved]
  - Decreased appetite [Not Recovered/Not Resolved]
  - Somnolence [Not Recovered/Not Resolved]
  - Fatigue [Not Recovered/Not Resolved]

NARRATIVE: CASE EVENT DATE: 20210101
